FAERS Safety Report 9520900 (Version 1)
Quarter: 2013Q1

REPORT INFORMATION
  Report Type: Spontaneous
  Country: US (occurrence: None)
  Receive Date: 20130305
  Receipt Date: 20130305
  Transmission Date: 20140127
  Serious: Yes (Other)
  Sender: FDA-Public Use
  Company Number: 163-21880-11091463

PATIENT
  Age: 79 Year
  Sex: Male

DRUGS (3)
  1. REVLIMID [Suspect]
     Indication: PLASMA CELL MYELOMA
     Dosage: 25 MG, 21 IN 28 D, PO
     Route: 048
     Dates: start: 20110906
  2. DEXAMETHASONE (DEXAMETHASONE) (UNKNOWN) [Concomitant]
  3. METFORMIN (METFORMIN) (UNKNOWN) [Concomitant]

REACTIONS (13)
  - Chest pain [None]
  - Fatigue [None]
  - White blood cell count decreased [None]
  - Red blood cell count decreased [None]
  - Platelet count decreased [None]
  - Back pain [None]
  - Platelet disorder [None]
  - Blood glucose increased [None]
  - Confusional state [None]
  - Dizziness [None]
  - Rash [None]
  - Pain [None]
  - Rash [None]
